FAERS Safety Report 5156521-X (Version None)
Quarter: 2006Q4

REPORT INFORMATION
  Report Type: 
  Country: None (occurrence: None)
  Receive Date: 20061122
  Receipt Date: 20060929
  Transmission Date: 20070319
  Serious: Yes (Hospitalization, Other)
  Sender: FDA-Public Use
  Company Number: US-ALLERGAN-0605832US

PATIENT
  Age: 10 Year
  Sex: Male

DRUGS (1)
  1. BOTOX [Suspect]
     Indication: DIPLEGIA
     Dosage: 10 IU/KG, SINGLE
     Route: 030

REACTIONS (2)
  - GUILLAIN-BARRE SYNDROME [None]
  - UPPER RESPIRATORY TRACT INFECTION [None]
